FAERS Safety Report 10180979 (Version 1)
Quarter: 2014Q2

REPORT INFORMATION
  Report Type: Spontaneous
  Country: US (occurrence: US)
  Receive Date: 20140519
  Receipt Date: 20140519
  Transmission Date: 20141212
  Serious: No
  Sender: FDA-Public Use
  Company Number: US-AMGEN INC.-USASP2014006687

PATIENT
  Age: 71 Year
  Sex: Female

DRUGS (4)
  1. PROLIA [Suspect]
     Indication: OSTEOPOROSIS POSTMENOPAUSAL
     Dosage: UNK
     Route: 065
     Dates: start: 201301
  2. CALTRATE                           /07357001/ [Concomitant]
     Dosage: UNK UNK, 2 BID
  3. VITAMIN D                          /00107901/ [Concomitant]
     Dosage: 400 UNK, BID
  4. XANAX [Concomitant]
     Indication: SLEEP DISORDER
     Dosage: 0.0125 MG , QHS

REACTIONS (9)
  - Myalgia [Unknown]
  - Incorrect dose administered [Unknown]
  - Bronchitis [Unknown]
  - Nasopharyngitis [Unknown]
  - Rotator cuff syndrome [Unknown]
  - Influenza [Unknown]
  - Neuropathy peripheral [Unknown]
  - Arthralgia [Unknown]
  - Pain in extremity [Unknown]
